FAERS Safety Report 5021009-3 (Version None)
Quarter: 2006Q2

REPORT INFORMATION
  Report Type: 
  Country: None (occurrence: None)
  Receive Date: 20060608
  Receipt Date: 20060119
  Transmission Date: 20061013
  Serious: Yes (Hospitalization)
  Sender: FDA-Public Use
  Company Number: PHMT2006CA00548

PATIENT
  Age: 43 Year
  Sex: Female
  Weight: 60 kg

DRUGS (8)
  1. GLEEVEC [Suspect]
     Indication: CHRONIC MYELOID LEUKAEMIA
     Dosage: 800 MG, QD
     Route: 048
     Dates: start: 20050101
  2. DOCUSATE [Concomitant]
     Dosage: 200 MG, BID
  3. STEMETIL SUPPOSITORY [Concomitant]
     Dosage: 10 MG, QID PRN
     Route: 054
  4. MORPHINE CR [Concomitant]
     Dosage: 230 MG
  5. SENNA [Concomitant]
     Dosage: 122 MG, BID
  6. DOMPERIDONE [Concomitant]
     Dosage: 10 MG AC AND QHS
  7. CIPRO [Concomitant]
     Dosage: 500 MG, BID
  8. GABAPENTIN [Concomitant]
     Dosage: 100, Q8H
     Route: 048

REACTIONS (10)
  - BONE PAIN [None]
  - HAEMATEMESIS [None]
  - HAEMOGLOBIN DECREASED [None]
  - INTERNATIONAL NORMALISED RATIO INCREASED [None]
  - MYALGIA [None]
  - OEDEMA PERIPHERAL [None]
  - OESOPHAGEAL HAEMORRHAGE [None]
  - OESOPHAGEAL POLYP [None]
  - OESOPHAGITIS [None]
  - THROMBOCYTOPENIA [None]
